FAERS Safety Report 9820867 (Version 1)
Quarter: 2014Q1

REPORT INFORMATION
  Report Type: Spontaneous
  Country: US (occurrence: None)
  Receive Date: 20140114
  Receipt Date: 20140114
  Transmission Date: 20141002
  Serious: Yes (Hospitalization, Disabling, Other)
  Sender: FDA-Public Use
  Company Number: None

PATIENT
  Age: 53 Year
  Sex: Female
  Weight: 48.08 kg

DRUGS (1)
  1. LEVOFLOXACIN 500 MG [Suspect]
     Indication: SINUSITIS
     Dosage: 1 TAB ONCE DAILY TAKEN BY MOUTH
     Route: 048
     Dates: start: 20130204, end: 20130214

REACTIONS (6)
  - Musculoskeletal pain [None]
  - Tendon disorder [None]
  - Gallbladder disorder [None]
  - Fibromyalgia [None]
  - Gastrointestinal disorder [None]
  - No therapeutic response [None]
